FAERS Safety Report 5907007-3 (Version None)
Quarter: 2008Q4

REPORT INFORMATION
  Report Type: 
  Country: None (occurrence: None)
  Receive Date: 20081002
  Receipt Date: 20081002
  Transmission Date: 20090506
  Serious: No
  Sender: FDA-Public Use
  Company Number: None

PATIENT
  Age: 79 Year
  Sex: Female
  Weight: 70.3075 kg

DRUGS (2)
  1. LEVAQUIN [Suspect]
     Indication: SINUSITIS
     Dosage: 1 ONCE A DAY PO
     Route: 048
     Dates: start: 20080914, end: 20080920
  2. LEVAQUIN [Suspect]
     Indication: STAPHYLOCOCCAL INFECTION
     Dosage: 1 ONCE A DAY PO
     Route: 048
     Dates: start: 20080914, end: 20080920

REACTIONS (11)
  - ARTHRALGIA [None]
  - BACK PAIN [None]
  - CHEST PAIN [None]
  - FEELING COLD [None]
  - HYPOAESTHESIA [None]
  - MOVEMENT DISORDER [None]
  - OEDEMA PERIPHERAL [None]
  - PAIN IN EXTREMITY [None]
  - SENSORY LOSS [None]
  - SWELLING FACE [None]
  - WEIGHT INCREASED [None]
